FAERS Safety Report 23862195 (Version 2)
Quarter: 2024Q2

REPORT INFORMATION
  Report Type: Other
  Country: CA (occurrence: None)
  Receive Date: 20240516
  Receipt Date: 20240607
  Transmission Date: 20240716
  Serious: Yes (Death, Hospitalization, Other)
  Sender: FDA-Public Use
  Company Number: CA-ROCHE-3561494

PATIENT

DRUGS (8)
  1. TECENTRIQ [Suspect]
     Active Substance: ATEZOLIZUMAB
     Indication: Neoplasm malignant
     Route: 042
  2. YERVOY [Suspect]
     Active Substance: IPILIMUMAB
     Indication: Neoplasm malignant
     Route: 065
  3. IMJUDO [Suspect]
     Active Substance: TREMELIMUMAB\TREMELIMUMAB-ACTL
     Indication: Neoplasm malignant
     Route: 065
  4. OPDIVO [Suspect]
     Active Substance: NIVOLUMAB
     Indication: Neoplasm malignant
     Route: 065
  5. KEYTRUDA [Suspect]
     Active Substance: PEMBROLIZUMAB
     Indication: Neoplasm malignant
     Route: 065
  6. BAVENCIO [Suspect]
     Active Substance: AVELUMAB
     Indication: Neoplasm malignant
     Route: 065
  7. IMFINZI [Suspect]
     Active Substance: DURVALUMAB
     Indication: Neoplasm malignant
     Route: 065
  8. LIBTAYO [Suspect]
     Active Substance: CEMIPLIMAB-RWLC
     Indication: Neoplasm malignant
     Route: 065

REACTIONS (46)
  - Immune-mediated adverse reaction [Fatal]
  - Rheumatic disorder [Fatal]
  - Anaphylactic reaction [Fatal]
  - Myocarditis [Fatal]
  - Adrenal insufficiency [Fatal]
  - Hepatitis [Fatal]
  - Recurrent cancer [Unknown]
  - Pancreatitis [Unknown]
  - Encephalitis [Unknown]
  - Rhabdomyolysis [Unknown]
  - Acute kidney injury [Unknown]
  - Blindness [Unknown]
  - Cognitive disorder [Unknown]
  - Systemic lupus erythematosus [Unknown]
  - Gout [Unknown]
  - Sarcoidosis [Unknown]
  - Arthritis [Unknown]
  - Rheumatoid arthritis [Unknown]
  - Psoriatic arthropathy [Unknown]
  - Ankylosing spondylitis [Unknown]
  - Thyroid disorder [Unknown]
  - Diabetes mellitus [Unknown]
  - Adrenal disorder [Unknown]
  - Hypothalamo-pituitary disorder [Unknown]
  - Eczema [Unknown]
  - Vitiligo [Unknown]
  - Lichen planus [Unknown]
  - Cellulitis [Unknown]
  - Colitis [Unknown]
  - Pericardial effusion [Unknown]
  - Seizure [Unknown]
  - Tremor [Unknown]
  - Neuropathy peripheral [Unknown]
  - Nephritis [Unknown]
  - Uveitis [Unknown]
  - Periorbital inflammation [Unknown]
  - Pneumonitis [Unknown]
  - Dermatitis atopic [Unknown]
  - Rheumatoid arthritis [Unknown]
  - Rheumatoid arthritis [Unknown]
  - Vertigo [Unknown]
  - Depression [Unknown]
  - Anxiety [Unknown]
  - Mental fatigue [Unknown]
  - Sleep disorder [Unknown]
  - Post-traumatic stress disorder [Unknown]
